FAERS Safety Report 4269740-1 (Version None)
Quarter: 2004Q1

REPORT INFORMATION
  Report Type: 
  Country: None (occurrence: None)
  Receive Date: 20040108
  Receipt Date: 20031223
  Transmission Date: 20041129
  Serious: Yes (Other)
  Sender: FDA-Public Use
  Company Number: 234556

PATIENT
  Sex: Male

DRUGS (2)
  1. NOVOSEVEN [Suspect]
     Indication: HAEMORRHAGE
     Dosage: INTRAVENOUS
     Dates: start: 20031201
  2. ANTIHEMOPHILIC FACTOR (HUMAN) [Concomitant]

REACTIONS (1)
  - DYSPNOEA [None]
